FAERS Safety Report 15241075 (Version 1)
Quarter: 2018Q3

REPORT INFORMATION
  Report Type: Spontaneous
  Country: US (occurrence: US)
  Receive Date: 20180711
  Receipt Date: 20180711
  Transmission Date: 20181010
  Serious: Yes (Other)
  Sender: FDA-Public Use
  Company Number: None

PATIENT
  Age: 66 Year
  Sex: Female

DRUGS (15)
  1. NORVASC [Concomitant]
     Active Substance: AMLODIPINE BESYLATE
  2. SINGULAIR [Concomitant]
     Active Substance: MONTELUKAST SODIUM
  3. DIOVAN [Concomitant]
     Active Substance: VALSARTAN
  4. DOXAZOSIN [Concomitant]
     Active Substance: DOXAZOSIN\DOXAZOSIN MESYLATE
  5. HYDROCORT CREAM % [Concomitant]
  6. TRILEPTAL [Concomitant]
     Active Substance: OXCARBAZEPINE
  7. IPRATROPIUM/SOL ALBUTEROL [Concomitant]
  8. US ***** IOL [Concomitant]
  9. BUDESONIDE NASAL [Concomitant]
  10. VITAMIN D3 1000UNIT [Concomitant]
  11. ZOLOFT [Concomitant]
     Active Substance: SERTRALINE HYDROCHLORIDE
  12. OCALIVA [Suspect]
     Active Substance: OBETICHOLIC ACID
     Indication: PRIMARY BILIARY CHOLANGITIS
     Route: 048
     Dates: start: 20170614
  13. ATENOLOL. [Concomitant]
     Active Substance: ATENOLOL
  14. WELLBUTRIN ER [Concomitant]
  15. ZANTAC [Concomitant]
     Active Substance: RANITIDINE HYDROCHLORIDE

REACTIONS (1)
  - Pruritus [None]

NARRATIVE: CASE EVENT DATE: 20180710
